FAERS Safety Report 11749856 (Version 1)
Quarter: 2015Q4

REPORT INFORMATION
  Report Type: Spontaneous
  Country: US (occurrence: None)
  Receive Date: 20151117
  Receipt Date: 20151117
  Transmission Date: 20160304
  Serious: Yes (Other)
  Sender: FDA-Public Use
  Company Number: None

PATIENT
  Age: 76 Year
  Sex: Female
  Weight: 74.84 kg

DRUGS (13)
  1. PROPOFOL IV [Suspect]
     Active Substance: PROPOFOL
     Indication: ANAESTHESIA
     Route: 042
  2. CLARITIN [Concomitant]
     Active Substance: LORATADINE
  3. AMLODIPINE [Concomitant]
     Active Substance: AMLODIPINE BESYLATE
  4. VITAMIN E [Concomitant]
     Active Substance: .ALPHA.-TOCOPHEROL
  5. PREDNISONE. [Concomitant]
     Active Substance: PREDNISONE
  6. NAMENDA [Concomitant]
     Active Substance: MEMANTINE HYDROCHLORIDE
  7. DULERA [Concomitant]
     Active Substance: FORMOTEROL FUMARATE DIHYDRATE\MOMETASONE FUROATE
  8. GALANTAMINE. [Concomitant]
     Active Substance: GALANTAMINE
  9. COMBIVENT RESPIMAT [Concomitant]
     Active Substance: ALBUTEROL SULFATE\IPRATROPIUM BROMIDE
  10. TYLENOL [Concomitant]
     Active Substance: ACETAMINOPHEN
  11. RALOXIFENE. [Concomitant]
     Active Substance: RALOXIFENE
  12. ATORVASTATIN [Concomitant]
     Active Substance: ATORVASTATIN
  13. LEVOTHYROXINE. [Concomitant]
     Active Substance: LEVOTHYROXINE

REACTIONS (3)
  - Rhinitis [None]
  - Sneezing [None]
  - Scab [None]

NARRATIVE: CASE EVENT DATE: 20151111
